FAERS Safety Report 20095368 (Version 6)
Quarter: 2024Q4

REPORT INFORMATION
  Report Type: Report from Study
  Country: FR (occurrence: FR)
  Receive Date: 20211122
  Receipt Date: 20241125
  Transmission Date: 20250114
  Serious: Yes (Hospitalization, Other)
  Sender: IPSEN BIOPHARMACEUTICALS, INC.
  Company Number: FR-IPSEN Group, Research and Development-2021-28888

PATIENT
  Age: 9 Year
  Sex: Female
  Weight: 21 kg

DRUGS (2)
  1. INCRELEX [Suspect]
     Active Substance: MECASERMIN
     Indication: Severe primary insulin like growth factor-1 deficiency
     Dosage: 0.038 (MG/KG)
     Route: 065
     Dates: start: 20211102, end: 20211107
  2. INCRELEX [Suspect]
     Active Substance: MECASERMIN
     Indication: Off label use
     Dosage: 0.076 (MG/KG)
     Route: 065
     Dates: start: 20211108, end: 20211114

REACTIONS (2)
  - Facial paralysis [Recovered/Resolved]
  - Off label use [Unknown]

NARRATIVE: CASE EVENT DATE: 20211102
